FAERS Safety Report 12339083 (Version 1)
Quarter: 2016Q2

REPORT INFORMATION
  Report Type: Spontaneous
  Country: US (occurrence: US)
  Receive Date: 20160505
  Receipt Date: 20160505
  Transmission Date: 20160815
  Serious: No
  Sender: FDA-Public Use
  Company Number: US-MAYNE PHARMA-2015MYN000079

PATIENT
  Age: 61 Year
  Sex: Female

DRUGS (3)
  1. LIOTHYRONINE [Suspect]
     Active Substance: LIOTHYRONINE
     Indication: HYPOTHYROIDISM
     Dosage: 20 MCG, QD
     Route: 048
     Dates: start: 20150930
  2. LEVOTHYROXINE. [Concomitant]
     Active Substance: LEVOTHYROXINE
     Indication: HYPOTHYROIDISM
     Dosage: 37.5 MCG, QD
  3. OXYCODONE [Concomitant]
     Active Substance: OXYCODONE
     Indication: PAIN
     Dosage: 1-1 1/2 TABLETS Q6HRS

REACTIONS (3)
  - Palpitations [Unknown]
  - Heart rate increased [Unknown]
  - Thyroid function test abnormal [Unknown]
